FAERS Safety Report 10166400 (Version 1)
Quarter: 2014Q2

REPORT INFORMATION
  Report Type: Spontaneous
  Country: US (occurrence: US)
  Receive Date: 20140512
  Receipt Date: 20140512
  Transmission Date: 20141212
  Serious: No
  Sender: FDA-Public Use
  Company Number: US-TEVA-466946USA

PATIENT
  Sex: Male

DRUGS (1)
  1. GRANIX [Suspect]

REACTIONS (2)
  - Bone pain [Unknown]
  - Injection site pain [Unknown]
